FAERS Safety Report 10098459 (Version 1)
Quarter: 2014Q2

REPORT INFORMATION
  Report Type: Spontaneous
  Country: FR (occurrence: FR)
  Receive Date: 20140423
  Receipt Date: 20140423
  Transmission Date: 20141212
  Serious: Yes (Hospitalization)
  Sender: FDA-Public Use
  Company Number: FR-JNJFOC-20140411931

PATIENT
  Age: 82 Year
  Sex: Male

DRUGS (10)
  1. XARELTO [Suspect]
     Indication: ATRIAL FIBRILLATION
     Route: 048
     Dates: end: 20140307
  2. XARELTO [Suspect]
     Indication: CEREBROVASCULAR ACCIDENT PROPHYLAXIS
     Route: 048
     Dates: end: 20140307
  3. KARDEGIC [Suspect]
     Indication: PRODUCT USED FOR UNKNOWN INDICATION
     Route: 048
  4. AMLODIPINE [Concomitant]
     Route: 065
  5. TRIATEC [Concomitant]
     Route: 065
  6. MECIR [Concomitant]
     Route: 065
  7. BRICANYL [Concomitant]
     Route: 065
  8. SIMVASTATINE [Concomitant]
     Route: 065
  9. ATENOLOL [Concomitant]
     Route: 065
  10. INEXIUM [Concomitant]
     Route: 065

REACTIONS (4)
  - Cerebral haematoma [Not Recovered/Not Resolved]
  - Meningorrhagia [Not Recovered/Not Resolved]
  - Disorientation [Not Recovered/Not Resolved]
  - Periorbital haemorrhage [Not Recovered/Not Resolved]
